FAERS Safety Report 17387154 (Version 1)
Quarter: 2020Q1

REPORT INFORMATION
  Report Type: Other
  Country: US (occurrence: US)
  Receive Date: 20200206
  Receipt Date: 20200206
  Transmission Date: 20200409
  Serious: Yes (Life-Threatening)
  Sender: FDA-Public Use
  Company Number: US-VITRUVIAS THERAPEUTICS-2079935

PATIENT
  Age: 52 Year
  Sex: Female

DRUGS (6)
  1. TRAZODONE [Concomitant]
     Active Substance: TRAZODONE HYDROCHLORIDE
  2. METFORMIN HYDROCHLORIDE. [Concomitant]
     Active Substance: METFORMIN HYDROCHLORIDE
  3. LIDOCAINE. [Suspect]
     Active Substance: LIDOCAINE
     Route: 042
  4. LIDOCAINE. [Suspect]
     Active Substance: LIDOCAINE
     Route: 042
  5. GABAPENTIN. [Concomitant]
     Active Substance: GABAPENTIN
  6. SERTRALINE [Concomitant]
     Active Substance: SERTRALINE HYDROCHLORIDE

REACTIONS (1)
  - Cardiac arrest [Recovered/Resolved]
